FAERS Safety Report 13445743 (Version 1)
Quarter: 2017Q2

REPORT INFORMATION
  Report Type: Report from Study
  Country: US (occurrence: US)
  Receive Date: 20170416
  Receipt Date: 20170416
  Transmission Date: 20170830
  Serious: No
  Sender: FDA-Public Use
  Company Number: US-AMGEN-USASL2017056324

PATIENT
  Age: 74 Year
  Sex: Female

DRUGS (4)
  1. AMLODIPINE [Concomitant]
     Active Substance: AMLODIPINE BESYLATE
     Indication: BLOOD PRESSURE ABNORMAL
  2. METOPROLOL. [Concomitant]
     Active Substance: METOPROLOL
     Indication: BLOOD PRESSURE ABNORMAL
     Dosage: UNK
  3. DYAZIDE [Concomitant]
     Active Substance: HYDROCHLOROTHIAZIDE\TRIAMTERENE
     Indication: BLOOD PRESSURE ABNORMAL
  4. ENBREL [Suspect]
     Active Substance: ETANERCEPT
     Indication: RHEUMATOID ARTHRITIS
     Dosage: `50 MG, QWK
     Route: 065
     Dates: start: 2000

REACTIONS (2)
  - Chloasma [Recovered/Resolved]
  - Pain [Unknown]

NARRATIVE: CASE EVENT DATE: 2007
